FAERS Safety Report 15218719 (Version 2)
Quarter: 2018Q4

REPORT INFORMATION
  Report Type: Report from Study
  Country: FR (occurrence: FR)
  Receive Date: 20180731
  Receipt Date: 20181017
  Transmission Date: 20190204
  Serious: Yes (Congenital Anomaly, Other)
  Sender: FDA-Public Use
  Company Number: FR-HETERO-HET2018FR00690

PATIENT
  Sex: Male
  Weight: 6.9 kg

DRUGS (3)
  1. TENOFOVIR [Suspect]
     Active Substance: TENOFOVIR
     Indication: HIV INFECTION
     Dosage: 245 MG, QD
     Route: 064
     Dates: start: 20151110, end: 20160721
  2. NEVIRAPINE. [Suspect]
     Active Substance: NEVIRAPINE
     Indication: HIV INFECTION
     Dosage: 1.5 ML
     Route: 064
     Dates: start: 20151110, end: 20160721
  3. ISENTRESS [Suspect]
     Active Substance: RALTEGRAVIR POTASSIUM
     Indication: HIV INFECTION
     Dosage: 400 MG, QD
     Route: 064
     Dates: start: 20151110, end: 20161208

REACTIONS (2)
  - Brachydactyly [Unknown]
  - Foetal exposure during pregnancy [Unknown]
